FAERS Safety Report 7416951-X (Version None)
Quarter: 2011Q2

REPORT INFORMATION
  Report Type: 
  Country: None (occurrence: None)
  Receive Date: 20110408
  Receipt Date: 20110329
  Transmission Date: 20111010
  Serious: Yes (Life-Threatening, Hospitalization)
  Sender: FDA-Public Use
  Company Number: DSA_45328_2011

PATIENT
  Age: 72 Year
  Sex: Male

DRUGS (6)
  1. METFORMIN [Concomitant]
  2. VALSARTAN [Concomitant]
  3. MASDIL (MASDIL - DILTIAZEM HYDROCHLORIDE) 60 MG (NOT SPECIFIED) [Suspect]
     Indication: HYPERTENSION
     Dosage: 60 MG, QD, ORAL
     Route: 048
     Dates: end: 20081007
  4. SPIRONOLACTONE [Concomitant]
  5. INDAPAMIDE [Concomitant]
  6. SUMIAL (SUMIAL - PROPRANOLOL HYDROCHLORIDE) (NOT SPECIFIED) [Suspect]
     Indication: HEPATIC CIRRHOSIS
     Dosage: 60 MG, QD, ORAL
     Route: 048
     Dates: start: 20081006, end: 20081007

REACTIONS (3)
  - DRUG INTERACTION [None]
  - ATRIOVENTRICULAR BLOCK [None]
  - BLOOD SODIUM DECREASED [None]
